FAERS Safety Report 12960528 (Version 4)
Quarter: 2017Q3

REPORT INFORMATION
  Report Type: Report from Study
  Country: AU (occurrence: AU)
  Receive Date: 20161121
  Receipt Date: 20170720
  Transmission Date: 20171127
  Serious: Yes (Hospitalization, Other)
  Sender: FDA-Public Use
  Company Number: AU-REGENERON PHARMACEUTICALS, INC.-2016-24081

PATIENT

DRUGS (3)
  1. FLUORESCEIN [Suspect]
     Active Substance: FLUORESCEIN
     Indication: ANGIOGRAM
     Dosage: UNK
     Dates: start: 20160915
  2. EYLEA [Suspect]
     Active Substance: AFLIBERCEPT
     Dosage: UNK (LAST INJECTION RECEIVED)
     Route: 031
     Dates: start: 20170629, end: 20170629
  3. EYLEA [Suspect]
     Active Substance: AFLIBERCEPT
     Indication: NEOVASCULAR AGE-RELATED MACULAR DEGENERATION
     Dosage: 2 MG, Q4WK
     Route: 031
     Dates: start: 20150915

REACTIONS (7)
  - Cardiac disorder [Recovered/Resolved]
  - Visual impairment [Not Recovered/Not Resolved]
  - Vision blurred [Recovered/Resolved]
  - Headache [Recovered/Resolved]
  - Vitreous floaters [Recovered/Resolved]
  - Allergy to chemicals [Recovered/Resolved]
  - Angina pectoris [Unknown]

NARRATIVE: CASE EVENT DATE: 20160915
